FAERS Safety Report 5388238-0 (Version None)
Quarter: 2007Q3

REPORT INFORMATION
  Report Type: 
  Country: None (occurrence: None)
  Receive Date: 20070716
  Receipt Date: 20070207
  Transmission Date: 20080115
  Serious: No
  Sender: FDA-Public Use
  Company Number: A0638532A

PATIENT
  Age: 42 Year

DRUGS (1)
  1. NICORETTE (MINT) [Suspect]
     Dates: start: 20070204

REACTIONS (2)
  - MALAISE [None]
  - MOOD ALTERED [None]
